FAERS Safety Report 5024184-X (Version None)
Quarter: 2006Q2

REPORT INFORMATION
  Report Type: 
  Country: None (occurrence: None)
  Receive Date: 20060607
  Receipt Date: 20060517
  Transmission Date: 20061013
  Serious: Yes (Hospitalization)
  Sender: FDA-Public Use
  Company Number: FR200602003703

PATIENT
  Age: 77 Year
  Sex: Female
  Weight: 50 kg

DRUGS (11)
  1. FORTEO [Suspect]
     Indication: OSTEOPOROSIS
     Dosage: 20 UG, DAILY (1/D), SUBCUTANEOUS
     Route: 058
     Dates: end: 20051206
  2. FORTEO [Suspect]
     Indication: OSTEOPOROSIS
     Dosage: 20 UG, DAILY (1/D), SUBCUTANEOUS
     Route: 058
     Dates: start: 20040624
  3. FORTEO PEN (250MCG/ML) [Concomitant]
  4. LEVOTHYROXINE SODIUM [Concomitant]
  5. IRBESARTAN [Concomitant]
  6. FORADIL [Concomitant]
  7. MORPHINE SULFATE [Concomitant]
  8. DURAGESIC-100 [Concomitant]
  9. CALCIT (CALCIUM CARBONATE, CITRIC ACID) [Concomitant]
  10. MOTILIUM [Concomitant]
  11. BETASERC                        (BETAHISTINE HYDROCHLORIDE) [Concomitant]

REACTIONS (3)
  - ELECTROENCEPHALOGRAM ABNORMAL [None]
  - EPILEPSY [None]
  - LEUKOARAIOSIS [None]
